FAERS Safety Report 8918894 (Version 2)
Quarter: 2013Q2

REPORT INFORMATION
  Report Type: Report from Study
  Country: JP (occurrence: JP)
  Receive Date: 20121121
  Receipt Date: 20130412
  Transmission Date: 20140414
  Serious: Yes (Hospitalization, Other)
  Sender: FDA-Public Use
  Company Number: JP-SHIRE-ALL1-2012-05701

PATIENT
  Age: 58 Year
  Sex: Male

DRUGS (18)
  1. 405 (LANTHANUM CARBONATE) [Suspect]
     Indication: HYPERPHOSPHATAEMIA
     Dosage: 1500 MG, OTHER(FOLLOWING MEALS)
     Route: 048
     Dates: start: 20110318, end: 20110613
  2. 405 (LANTHANUM CARBONATE) [Suspect]
     Dosage: 750 MG, OTHER(IMMEDIATELY FOLLOWING MEALS)
     Route: 048
     Dates: start: 20090918, end: 20100708
  3. 405 (LANTHANUM CARBONATE) [Suspect]
     Dosage: 500 MG, OTHER(IMMEDIATELY FOLLWOING MEALS)
     Route: 048
     Dates: start: 20100709, end: 20101209
  4. 405 (LANTHANUM CARBONATE) [Suspect]
     Dosage: 750 MG, OTHER(IMMEDIATELY FOLLOWING MEALS)
     Route: 048
     Dates: start: 20101210, end: 20110317
  5. RENAGEL                            /01459902/ [Concomitant]
     Indication: HYPERPHOSPHATAEMIA
     Dosage: 1500 MG, UNKNOWN
     Route: 048
     Dates: start: 20110216, end: 20111020
  6. RENAGEL                            /01459902/ [Concomitant]
     Dosage: 1500 MG, UNKNOWN
     Route: 048
     Dates: start: 20101008, end: 20101104
  7. RENAGEL                            /01459902/ [Concomitant]
     Dosage: 1000 MG, UNKNOWN
     Route: 048
     Dates: start: 20101105, end: 20110215
  8. RENAGEL                            /01459902/ [Concomitant]
     Dosage: 2250 MG, OTHER (TOTAL DOSE DAILY, UNKNOWN FREQUENCY)
     Route: 048
     Dates: start: 20111021
  9. RENAGEL                            /01459902/ [Concomitant]
     Dosage: 3000 MG, OTHER(DAILY, UNKNOWN FREQUENCY)
     Dates: start: 20111118
  10. CALFINA [Concomitant]
     Indication: PRODUCT USED FOR UNKNOWN INDICATION
     Dosage: 0.5 ?G, UNKNOWN
     Route: 048
     Dates: start: 20100917, end: 20110728
  11. BAYASPIRIN [Concomitant]
     Indication: MITRAL VALVE INCOMPETENCE
     Dosage: 100 MG, UNKNOWN
     Route: 048
  12. MUCOSTA [Concomitant]
     Indication: GASTRITIS
     Dosage: 300 MG, UNKNOWN
     Route: 048
  13. DOPS [Concomitant]
     Indication: ORTHOSTATIC HYPOTENSION
     Dosage: 100 MG, UNKNOWN
     Route: 048
  14. RISUMIC [Concomitant]
     Indication: ORTHOSTATIC HYPOTENSION
     Dosage: 10 MG, UNKNOWN
     Route: 048
  15. CALTAN [Concomitant]
     Indication: HYPERPHOSPHATAEMIA
     Dosage: 1500 MG, UNKNOWN
     Route: 048
     Dates: end: 20090813
  16. CALTAN [Concomitant]
     Dosage: 3000 MG, UNKNOWN
     Route: 048
     Dates: start: 20090814, end: 20091113
  17. CALTAN [Concomitant]
     Dosage: 1500 MG, UNKNOWN
     Route: 048
     Dates: start: 20091113, end: 20100613
  18. CALTAN [Concomitant]
     Dosage: 1000 MG, UNKNOWN
     Route: 048
     Dates: start: 20100611, end: 20101007

REACTIONS (1)
  - Ileus [Recovering/Resolving]
